FAERS Safety Report 12137297 (Version 1)
Quarter: 2016Q1

REPORT INFORMATION
  Report Type: Spontaneous
  Country: GB (occurrence: GB)
  Receive Date: 20160302
  Receipt Date: 20160302
  Transmission Date: 20160526
  Serious: Yes (Hospitalization)
  Sender: FDA-Public Use
  Company Number: GB-SA-2016SA034767

PATIENT
  Sex: Female

DRUGS (4)
  1. LEVODOPA [Concomitant]
     Active Substance: LEVODOPA
  2. CEREZYME [Suspect]
     Active Substance: IMIGLUCERASE
     Route: 041
     Dates: end: 20160203
  3. QUETIAPINE [Concomitant]
     Active Substance: QUETIAPINE
  4. CEREZYME [Suspect]
     Active Substance: IMIGLUCERASE
     Route: 041
     Dates: start: 20160224

REACTIONS (5)
  - General physical health deterioration [Unknown]
  - Dizziness [Unknown]
  - Confusional state [Unknown]
  - Mobility decreased [Unknown]
  - Hallucination [Unknown]
